FAERS Safety Report 10157505 (Version 1)
Quarter: 2014Q2

REPORT INFORMATION
  Report Type: Spontaneous
  Country: GB (occurrence: GB)
  Receive Date: 20140507
  Receipt Date: 20140507
  Transmission Date: 20141212
  Serious: Yes (Disabling)
  Sender: FDA-Public Use
  Company Number: GB-SA-2014SA054062

PATIENT
  Age: 31 Year
  Sex: Female
  Weight: 138 kg

DRUGS (2)
  1. ENOXAPARIN SODIUM [Suspect]
     Indication: PRODUCT USED FOR UNKNOWN INDICATION
     Route: 065
     Dates: start: 20140414
  2. GAVISCON [Concomitant]
     Dates: start: 20140130, end: 20140227

REACTIONS (5)
  - Nausea [Recovered/Resolved]
  - Depersonalisation [Unknown]
  - Vertigo [Unknown]
  - Disorientation [Unknown]
  - Malaise [Unknown]
